FAERS Safety Report 11169604 (Version 1)
Quarter: 2015Q2

REPORT INFORMATION
  Report Type: Report from Study
  Country: US (occurrence: US)
  Receive Date: 20150605
  Receipt Date: 20150605
  Transmission Date: 20150821
  Serious: Yes (Hospitalization)
  Sender: FDA-Public Use
  Company Number: US-BIOMARINAP-US-2015-105878

PATIENT
  Age: 16 Year
  Sex: Male
  Weight: 29.3 kg

DRUGS (7)
  1. FLONASE [Concomitant]
     Active Substance: FLUTICASONE PROPIONATE
     Indication: NASAL CONGESTION
     Dosage: 50 MG, PRN
     Dates: start: 2010
  2. TUMS                               /00751519/ [Concomitant]
     Indication: ABDOMINAL PAIN UPPER
     Dosage: 750 MG, BID
     Route: 048
     Dates: start: 201409
  3. AKWA TEARS                         /00134201/ [Concomitant]
     Indication: PROPHYLAXIS
     Dosage: UNK, QD
     Route: 061
     Dates: start: 2012
  4. REFRESH                            /00007001/ [Concomitant]
     Indication: PROPHYLAXIS
     Dosage: UNK, QD
     Route: 047
     Dates: start: 201310
  5. NAGLAZYME [Suspect]
     Active Substance: GALSULFASE
     Indication: MUCOPOLYSACCHARIDOSIS VI
     Dosage: 30 MG, QW
     Route: 042
     Dates: start: 20100211
  6. VITAMIN D3 [Concomitant]
     Active Substance: CHOLECALCIFEROL
     Indication: PROPHYLAXIS
     Dosage: 50000 IU, QW
     Route: 048
     Dates: start: 201408
  7. CLARITIN [Concomitant]
     Active Substance: LORATADINE
     Indication: PREMEDICATION
     Dosage: 10 MG, UNK
     Route: 048

REACTIONS (1)
  - Ear infection [Recovered/Resolved]

NARRATIVE: CASE EVENT DATE: 20120301
